FAERS Safety Report 5147173-3 (Version None)
Quarter: 2006Q4

REPORT INFORMATION
  Report Type: 
  Country: None (occurrence: None)
  Receive Date: 20061109
  Receipt Date: 20061106
  Transmission Date: 20070319
  Serious: Yes (Hospitalization)
  Sender: FDA-Public Use
  Company Number: US-BOEHRINGER INGELHEIM PHARMACEUTICALS, INC.-2006-BP-12939BP

PATIENT
  Sex: Female

DRUGS (4)
  1. MOBIC [Suspect]
     Indication: OSTEOARTHRITIS
     Route: 048
     Dates: start: 20060822, end: 20060919
  2. LYRICA [Concomitant]
  3. ZOLOFT [Concomitant]
  4. AMBIEN CR [Concomitant]

REACTIONS (7)
  - BACK PAIN [None]
  - BLADDER DISORDER [None]
  - DELUSIONAL DISORDER, UNSPECIFIED TYPE [None]
  - GAIT DISTURBANCE [None]
  - HEADACHE [None]
  - HYPOAESTHESIA [None]
  - PALPITATIONS [None]
